FAERS Safety Report 6583252-1 (Version None)
Quarter: 2010Q1

REPORT INFORMATION
  Report Type: 
  Country: None (occurrence: None)
  Receive Date: 20100216
  Receipt Date: 20100211
  Transmission Date: 20100710
  Serious: Yes (Other)
  Sender: FDA-Public Use
  Company Number: A0613710A

PATIENT
  Age: 45 Year
  Sex: Male

DRUGS (3)
  1. LAMICTAL [Suspect]
     Dosage: 25MG TWICE PER DAY
     Route: 048
     Dates: start: 19981101, end: 19990101
  2. DILANTIN [Concomitant]
  3. GABAPENTIN [Concomitant]

REACTIONS (5)
  - DYSPNOEA [None]
  - MYOCARDIAL INFARCTION [None]
  - PANIC ATTACK [None]
  - RASH [None]
  - TACHYCARDIA [None]
